FAERS Safety Report 8263678-0 (Version None)
Quarter: 2012Q2

REPORT INFORMATION
  Report Type: 
  Country: None (occurrence: None)
  Receive Date: 20120405
  Receipt Date: 20120324
  Transmission Date: 20120825
  Serious: Yes (Hospitalization)
  Sender: FDA-Public Use
  Company Number: US-ROCHE-1040811

PATIENT
  Age: 59 Year
  Sex: Female
  Weight: 86 kg

DRUGS (9)
  1. PACLITAXEL [Suspect]
     Indication: FALLOPIAN TUBE CANCER
  2. AVASTIN [Suspect]
     Indication: OVARIAN CANCER
     Dosage: OVER 30-90 MIN ON DAY 1, BEGINNING WITH CYCLE 2
     Route: 042
     Dates: start: 20111108
  3. CISPLATIN [Suspect]
     Indication: OVARIAN CANCER
  4. AVASTIN [Suspect]
     Indication: MALIGNANT PERITONEAL NEOPLASM
  5. PACLITAXEL [Suspect]
     Indication: OVARIAN CANCER
     Dosage: OVER 3 HOURS ON DAY 1
     Route: 042
     Dates: start: 20111108
  6. PACLITAXEL [Suspect]
     Indication: MALIGNANT PERITONEAL NEOPLASM
     Dosage: ON DAY 8
     Route: 033
  7. CISPLATIN [Suspect]
     Indication: FALLOPIAN TUBE CANCER
  8. AVASTIN [Suspect]
     Indication: FALLOPIAN TUBE CANCER
  9. CISPLATIN [Suspect]
     Indication: MALIGNANT PERITONEAL NEOPLASM
     Dosage: ON DAY 2
     Route: 033
     Dates: start: 20111108

REACTIONS (27)
  - EMBOLISM [None]
  - ACUTE SINUSITIS [None]
  - SWELLING FACE [None]
  - MOBILITY DECREASED [None]
  - MUSCULOSKELETAL DISORDER [None]
  - BLOOD LACTIC ACID INCREASED [None]
  - BACK PAIN [None]
  - HEART RATE INCREASED [None]
  - MUSCLE HAEMORRHAGE [None]
  - LIVEDO RETICULARIS [None]
  - MUSCULOSKELETAL PAIN [None]
  - BLOOD PRESSURE DECREASED [None]
  - HAEMATOMA [None]
  - SUPERIOR VENA CAVA SYNDROME [None]
  - URINARY TRACT INFECTION [None]
  - METABOLIC ACIDOSIS [None]
  - JUGULAR VEIN THROMBOSIS [None]
  - PLEURAL EFFUSION [None]
  - CONTUSION [None]
  - SPEECH DISORDER [None]
  - HYPOTENSION [None]
  - OXYGEN SATURATION DECREASED [None]
  - RESPIRATORY ALKALOSIS [None]
  - VENA CAVA THROMBOSIS [None]
  - VISUAL ACUITY REDUCED [None]
  - INDURATION [None]
  - PELVIC HAEMATOMA [None]
